FAERS Safety Report 9120519 (Version 2)
Quarter: 2013Q2

REPORT INFORMATION
  Report Type: Spontaneous
  Country: PR (occurrence: US)
  Receive Date: 20130226
  Receipt Date: 20130402
  Transmission Date: 20140414
  Serious: Yes (Death, Hospitalization, Other)
  Sender: FDA-Public Use
  Company Number: US-B.I. PHARMACEUTICALS,INC./RIDGEFIELD-2013-BI-05037BP

PATIENT
  Age: 63 Year
  Sex: Female

DRUGS (1)
  1. PRADAXA [Suspect]
     Indication: ATRIAL FIBRILLATION
     Dosage: 300 MG
     Dates: start: 201209

REACTIONS (4)
  - Ischaemic stroke [Fatal]
  - Haemorrhage intracranial [Fatal]
  - Hypertension [Unknown]
  - Depressed level of consciousness [Unknown]
